FAERS Safety Report 6835392-7 (Version None)
Quarter: 2010Q3

REPORT INFORMATION
  Report Type: 
  Country: None (occurrence: None)
  Receive Date: 20100713
  Receipt Date: 20100621
  Transmission Date: 20110219
  Serious: No
  Sender: FDA-Public Use
  Company Number: US-B.I. PHARMACEUTICALS,INC./RIDGEFIELD-2010-BP-05461BP

PATIENT
  Sex: Female
  Weight: 82 kg

DRUGS (8)
  1. ZANTAC 75 [Suspect]
     Indication: DYSPEPSIA
     Dosage: 150 MG
     Route: 048
     Dates: start: 20100510, end: 20100511
  2. ZANTAC 75 [Suspect]
     Indication: HIATUS HERNIA
  3. ZANTAC 75 [Suspect]
     Indication: GASTROOESOPHAGEAL REFLUX DISEASE
  4. ZANTAC 75 [Suspect]
  5. DILANTIN [Concomitant]
     Indication: EPILEPSY
  6. SYNTHROID [Concomitant]
     Indication: HYPOTHYROIDISM
  7. KLONOPIN [Concomitant]
     Indication: ANXIETY
  8. ZOCOR [Concomitant]
     Indication: BLOOD CHOLESTEROL INCREASED

REACTIONS (2)
  - DRUG INEFFECTIVE [None]
  - GASTROOESOPHAGEAL REFLUX DISEASE [None]
